FAERS Safety Report 22352654 (Version 1)
Quarter: 2023Q2

REPORT INFORMATION
  Report Type: Spontaneous
  Country: FR (occurrence: FR)
  Receive Date: 20230523
  Receipt Date: 20230523
  Transmission Date: 20230722
  Serious: Yes (Hospitalization, Other)
  Sender: FDA-Public Use
  Company Number: None

PATIENT

DRUGS (1)
  1. ADVIL [Suspect]
     Active Substance: IBUPROFEN
     Indication: Otitis media acute
     Dosage: UNK
     Route: 048
     Dates: start: 20230419, end: 20230429

REACTIONS (2)
  - Mastoiditis [Recovering/Resolving]
  - Cellulite [Recovering/Resolving]

NARRATIVE: CASE EVENT DATE: 20230428
